FAERS Safety Report 7259194-5 (Version None)
Quarter: 2011Q1

REPORT INFORMATION
  Report Type: 
  Country: None (occurrence: None)
  Receive Date: 20110129
  Receipt Date: 20100621
  Transmission Date: 20110831
  Serious: No
  Sender: FDA-Public Use
  Company Number: US-ABBOTT-10P-163-0653871-00

PATIENT
  Sex: Female
  Weight: 73.548 kg

DRUGS (4)
  1. SYNTHROID [Concomitant]
     Indication: PRODUCT USED FOR UNKNOWN INDICATION
  2. RECLAST [Suspect]
     Indication: OSTEOPOROSIS
     Dosage: INFUSION
     Route: 042
     Dates: start: 20070101, end: 20100101
  3. ACIPHEX [Concomitant]
     Indication: FLATULENCE
  4. HUMIRA [Suspect]
     Indication: RHEUMATOID ARTHRITIS
     Route: 058
     Dates: start: 20050101, end: 20100607

REACTIONS (3)
  - TINNITUS [None]
  - ARTHRALGIA [None]
  - URINARY TRACT INFECTION [None]
